FAERS Safety Report 6002528-X (Version None)
Quarter: 2008Q4

REPORT INFORMATION
  Report Type: 
  Country: None (occurrence: None)
  Receive Date: 20081215
  Receipt Date: 20071124
  Transmission Date: 20090506
  Serious: No
  Sender: FDA-Public Use
  Company Number: US-AMGEN-KDL253883

PATIENT
  Sex: Female

DRUGS (3)
  1. ENBREL [Suspect]
     Indication: RHEUMATOID ARTHRITIS
     Route: 058
     Dates: start: 20071102
  2. METHOTREXATE [Concomitant]
     Dates: start: 20000101
  3. AZULFIDINE EN-TABS [Concomitant]
     Dates: start: 20000101

REACTIONS (2)
  - RASH PAPULAR [None]
  - RASH PUSTULAR [None]
